FAERS Safety Report 5259329-X (Version None)
Quarter: 2007Q1

REPORT INFORMATION
  Report Type: 
  Country: None (occurrence: None)
  Receive Date: 20070305
  Receipt Date: 20070227
  Transmission Date: 20070707
  Serious: Yes (Death, Other)
  Sender: FDA-Public Use
  Company Number: TCI2007A00698

PATIENT
  Age: 81 Year
  Sex: Male

DRUGS (7)
  1. LANSOPRAZOLE [Suspect]
     Indication: GASTRIC ULCER
     Dosage: 30 MG (30 MG, 1 IN 1 D) PER ORAL
     Route: 048
     Dates: start: 20070130, end: 20070205
  2. LASIX [Concomitant]
  3. LUPRAC (TORASEMIDE) (TABLETS) [Concomitant]
  4. HALFDIGOXIN-KY (DIGOXIN) (TABLETS) [Concomitant]
  5. SLOW-K (POATSSIUM CHLORIDE) (TABLETS) [Concomitant]
  6. ALOSENN (ALOSENN /00476901/) (GRANULATE) [Concomitant]
  7. ALLOPURINOL [Concomitant]

REACTIONS (4)
  - ACUTE HEPATIC FAILURE [None]
  - CARDIAC FAILURE [None]
  - PNEUMONIA [None]
  - RENAL IMPAIRMENT [None]
